FAERS Safety Report 9031284 (Version 1)
Quarter: 2013Q1

REPORT INFORMATION
  Report Type: Spontaneous
  Country: US (occurrence: US)
  Receive Date: 20130124
  Receipt Date: 20130124
  Transmission Date: 20140127
  Serious: No
  Sender: FDA-Public Use
  Company Number: US-009507513-1301USA010511

PATIENT
  Sex: Female

DRUGS (2)
  1. MAXALT [Suspect]
     Indication: MIGRAINE
  2. IMITREX (SUMATRIPTAN SUCCINATE) [Suspect]
     Indication: MIGRAINE

REACTIONS (1)
  - Drug ineffective [Unknown]
